FAERS Safety Report 10286333 (Version 2)
Quarter: 2014Q3

REPORT INFORMATION
  Report Type: Report from Study
  Country: CA (occurrence: CA)
  Receive Date: 20140709
  Receipt Date: 20140709
  Transmission Date: 20150326
  Serious: Yes (Death, Hospitalization)
  Sender: FDA-Public Use
  Company Number: CA-CELGENEUS-028-C5013-14011972

PATIENT
  Age: 87 Year
  Sex: Female
  Weight: 66.3 kg

DRUGS (40)
  1. METOPROLOL [Concomitant]
     Active Substance: METOPROLOL
     Dosage: 50 MILLIGRAM
     Route: 048
     Dates: start: 20140120, end: 20140121
  2. LISINOPRIL. [Concomitant]
     Active Substance: LISINOPRIL
     Indication: HYPERTENSION
     Dosage: 5 MILLIGRAM
     Route: 048
     Dates: start: 201202, end: 20140110
  3. THROAT LOZENGES [Concomitant]
     Indication: MUCOSAL INFLAMMATION
     Route: 048
     Dates: start: 20140119, end: 20140120
  4. DILAUDID [Concomitant]
     Active Substance: HYDROMORPHONE HYDROCHLORIDE
     Indication: ABDOMINAL PAIN UPPER
     Dosage: 0.25-0.5MG
     Route: 058
     Dates: start: 20140117, end: 20140121
  5. GLYCOPYRROLATE. [Concomitant]
     Active Substance: GLYCOPYRROLATE
     Indication: PULMONARY CONGESTION
  6. METOPROLOL [Concomitant]
     Active Substance: METOPROLOL
     Dosage: 50 MILLIGRAM
     Route: 048
     Dates: start: 20140116, end: 20140120
  7. TECTA [Concomitant]
     Active Substance: PANTOPRAZOLE MAGNESIUM
     Indication: GASTROOESOPHAGEAL REFLUX DISEASE
     Dosage: 40 MILLIGRAM
     Route: 048
     Dates: start: 201202, end: 20140120
  8. NASONEX [Concomitant]
     Active Substance: MOMETASONE FUROATE
     Indication: NASAL CONGESTION
     Route: 048
     Dates: start: 2010, end: 20130630
  9. ZOPLICONE [Concomitant]
     Active Substance: ZOPICLONE
     Indication: INSOMNIA
     Route: 048
     Dates: start: 201009, end: 20131215
  10. WARFARIN [Concomitant]
     Active Substance: WARFARIN
     Indication: ATRIAL FIBRILLATION
     Route: 065
     Dates: start: 20121116, end: 20131213
  11. MULTIVITAMINS [Concomitant]
     Active Substance: VITAMINS
     Indication: EYE DISORDER
     Route: 065
     Dates: end: 20131217
  12. DILAUDID [Concomitant]
     Active Substance: HYDROMORPHONE HYDROCHLORIDE
     Indication: MUCOSAL INFLAMMATION
     Route: 048
     Dates: start: 20140119, end: 20140121
  13. VENTOLIN [Concomitant]
     Active Substance: ALBUTEROL SULFATE
     Route: 048
     Dates: start: 20140119, end: 20140119
  14. FUROSEMIDE. [Concomitant]
     Active Substance: FUROSEMIDE
     Route: 041
     Dates: start: 20140119, end: 20140119
  15. CIPROFLOXACIN. [Concomitant]
     Active Substance: CIPROFLOXACIN
     Indication: PRODUCT USED FOR UNKNOWN INDICATION
     Route: 048
     Dates: start: 20140114, end: 20140118
  16. VENTOLIN [Concomitant]
     Active Substance: ALBUTEROL SULFATE
     Indication: DYSPNOEA
     Dosage: 0.25MG
     Route: 048
     Dates: start: 20140119, end: 20140119
  17. GLYCOPYRROLATE. [Concomitant]
     Active Substance: GLYCOPYRROLATE
     Indication: SECRETION DISCHARGE
     Dosage: 0.2-0.4MG
     Route: 060
     Dates: start: 20140120, end: 20140121
  18. MIDAZOLAM [Concomitant]
     Active Substance: MIDAZOLAM\MIDAZOLAM HYDROCHLORIDE
     Indication: RESTLESSNESS
     Dosage: 1-3MG
     Route: 060
  19. CLAVULIN [Concomitant]
     Active Substance: AMOXICILLIN\CLAVULANIC ACID
     Indication: PRODUCT USED FOR UNKNOWN INDICATION
     Route: 048
     Dates: start: 20140114, end: 20140118
  20. LEVOFLOXACIN [Concomitant]
     Active Substance: LEVOFLOXACIN
     Indication: PNEUMONIA
     Route: 048
     Dates: start: 20140113, end: 20140117
  21. LASIX [Concomitant]
     Active Substance: FUROSEMIDE
     Indication: FLUID OVERLOAD
     Dosage: 3.6364 MILLIGRAM
     Route: 048
     Dates: start: 20140120, end: 20140121
  22. ATROVENT [Concomitant]
     Active Substance: IPRATROPIUM BROMIDE
     Indication: DYSPNOEA
     Dosage: 45.4545 MICROGRAM
     Route: 048
     Dates: start: 20140119, end: 20140119
  23. SENOKOT [Concomitant]
     Active Substance: SENNOSIDES
     Indication: CONSTIPATION
     Dosage: 2 TABLET
     Route: 048
     Dates: start: 20140106, end: 20140106
  24. POLYETHYLENE GLYCOL 3350. [Concomitant]
     Active Substance: POLYETHYLENE GLYCOL 3350
     Indication: CONSTIPATION
     Dosage: 17 MILLIGRAM
     Route: 048
     Dates: start: 20140106, end: 20140106
  25. VITAMIN K [Concomitant]
     Active Substance: PHYTONADIONE
     Indication: COAGULOPATHY
     Route: 041
     Dates: start: 20140114, end: 20140114
  26. FUROSEMIDE. [Concomitant]
     Active Substance: FUROSEMIDE
     Indication: FLUID OVERLOAD
     Route: 041
     Dates: start: 20140114, end: 20140114
  27. ONDANSETRON [Concomitant]
     Active Substance: ONDANSETRON
     Route: 041
     Dates: start: 20140119, end: 20140119
  28. CC-5013 [Suspect]
     Active Substance: LENALIDOMIDE
     Indication: ACUTE MYELOID LEUKAEMIA
     Dosage: 50 MILLIGRAM
     Route: 048
     Dates: start: 20140106, end: 20140119
  29. FERMAX [Concomitant]
     Indication: ROUTINE HEALTH MAINTENANCE
     Dosage: 150 MILLIGRAM
     Route: 041
     Dates: start: 20131125, end: 20131217
  30. TYLENOL [Concomitant]
     Active Substance: ACETAMINOPHEN
     Dosage: 325/650
     Route: 065
     Dates: start: 20140110, end: 20140121
  31. PRASCION RA [Concomitant]
     Active Substance: SULFACETAMIDE SODIUM\SULFUR
     Indication: DRY SKIN
     Dosage: 1.1 PERCENT
     Route: 030
     Dates: start: 201106, end: 20140120
  32. MIDAZOLAM [Concomitant]
     Active Substance: MIDAZOLAM\MIDAZOLAM HYDROCHLORIDE
     Indication: ANXIETY
  33. NORTRIPTYLINE [Concomitant]
     Active Substance: NORTRIPTYLINE
     Indication: SLEEP DISORDER
     Dosage: 10 MILLIGRAM
     Route: 048
     Dates: start: 201307, end: 20131215
  34. TYLENOL [Concomitant]
     Active Substance: ACETAMINOPHEN
     Indication: PRODUCT USED FOR UNKNOWN INDICATION
     Route: 065
     Dates: start: 201303, end: 20140110
  35. AZACITIDINE INJECTABLE [Suspect]
     Active Substance: AZACITIDINE
     Indication: ACUTE MYELOID LEUKAEMIA
     Dosage: 75 MILLIGRAM/SQ. METER
     Route: 058
     Dates: start: 20131230, end: 20140105
  36. METOPROLOL [Concomitant]
     Active Substance: METOPROLOL
     Indication: ATRIAL FIBRILLATION
     Dosage: 50 MILLIGRAM
     Route: 048
     Dates: start: 201211, end: 20140116
  37. DOMPERIDONE [Concomitant]
     Active Substance: DOMPERIDONE
     Indication: GASTRIC DISORDER
     Dosage: 10 MILLIGRAM
     Route: 048
     Dates: start: 201007, end: 20140120
  38. AVASTIN [Concomitant]
     Active Substance: BEVACIZUMAB
     Indication: MACULAR DEGENERATION
     Route: 030
     Dates: start: 2010, end: 20131112
  39. VITAMIN K [Concomitant]
     Active Substance: PHYTONADIONE
     Route: 041
     Dates: start: 20140120, end: 20140120
  40. ONDANSETRON [Concomitant]
     Active Substance: ONDANSETRON
     Indication: PREMEDICATION
     Route: 048
     Dates: start: 20131230, end: 20140105

REACTIONS (1)
  - Febrile neutropenia [Fatal]

NARRATIVE: CASE EVENT DATE: 20140110
